FAERS Safety Report 25862811 (Version 1)
Quarter: 2025Q3

REPORT INFORMATION
  Report Type: Spontaneous
  Country: US (occurrence: US)
  Receive Date: 20250930
  Receipt Date: 20250930
  Transmission Date: 20251020
  Serious: Yes (Hospitalization, Other)
  Sender: AUROBINDO
  Company Number: US-MLMSERVICE-20250827-PI626805-00165-1

PATIENT
  Age: 33 Year
  Sex: Male

DRUGS (3)
  1. OXALIPLATIN [Suspect]
     Active Substance: OXALIPLATIN
     Indication: Anaplastic large cell lymphoma T- and null-cell types
     Route: 065
  2. GEMCITABINE [Suspect]
     Active Substance: GEMCITABINE
     Indication: Anaplastic large cell lymphoma T- and null-cell types
     Route: 065
  3. NIVOLUMAB [Suspect]
     Active Substance: NIVOLUMAB
     Indication: Anaplastic large cell lymphoma T- and null-cell types
     Route: 065

REACTIONS (3)
  - Clostridium difficile colitis [Unknown]
  - Pseudomembranous colitis [Unknown]
  - Drug ineffective [Unknown]
